FAERS Safety Report 24054542 (Version 2)
Quarter: 2024Q3

REPORT INFORMATION
  Report Type: Report from Study
  Country: CA (occurrence: None)
  Receive Date: 20240705
  Receipt Date: 20240710
  Transmission Date: 20241016
  Serious: Yes (Hospitalization)
  Sender: ASTRAZENECA
  Company Number: 2024A060001

PATIENT
  Sex: Female

DRUGS (1)
  1. TEZEPELUMAB-EKKO [Suspect]
     Active Substance: TEZEPELUMAB-EKKO
     Indication: Asthma
     Dosage: 210.0MG UNKNOWN
     Route: 058
     Dates: start: 20230907

REACTIONS (10)
  - Wheezing [Unknown]
  - Enzyme abnormality [Unknown]
  - Secretion discharge [Unknown]
  - Asthenia [Unknown]
  - Asthma [Unknown]
  - Blood sodium decreased [Unknown]
  - Drug ineffective [Unknown]
  - Stress [Unknown]
  - Exposure to allergen [Unknown]
  - Emotional distress [Unknown]
